FAERS Safety Report 8276485-X (Version None)
Quarter: 2012Q2

REPORT INFORMATION
  Report Type: 
  Country: None (occurrence: None)
  Receive Date: 20120412
  Receipt Date: 20120402
  Transmission Date: 20120825
  Serious: Yes (Hospitalization, Other)
  Sender: FDA-Public Use
  Company Number: US-PFIZER INC-2012083967

PATIENT
  Sex: Female

DRUGS (1)
  1. ROBITUSSIN DM [Suspect]
     Dosage: UNK

REACTIONS (2)
  - CONDITION AGGRAVATED [None]
  - DRUG INEFFECTIVE [None]
